FAERS Safety Report 25864969 (Version 1)
Quarter: 2025Q3

REPORT INFORMATION
  Report Type: Spontaneous
  Country: GB (occurrence: None)
  Receive Date: 20250930
  Receipt Date: 20250930
  Transmission Date: 20251021
  Serious: Yes (Other)
  Sender: ENDO
  Company Number: GB-ENDO USA, INC.-2025-001981

PATIENT
  Age: 46 Year
  Sex: Male
  Weight: 73 kg

DRUGS (1)
  1. AVEED [Suspect]
     Active Substance: TESTOSTERONE UNDECANOATE
     Indication: Product used for unknown indication
     Route: 065

REACTIONS (4)
  - Pain in extremity [Recovered/Resolved]
  - Cough [Recovering/Resolving]
  - Dyspnoea [Recovering/Resolving]
  - Incorrect drug administration rate [Unknown]

NARRATIVE: CASE EVENT DATE: 20231023
